FAERS Safety Report 6785477-9 (Version None)
Quarter: 2010Q2

REPORT INFORMATION
  Report Type: 
  Country: None (occurrence: None)
  Receive Date: 20100623
  Receipt Date: 20100610
  Transmission Date: 20101027
  Serious: No
  Sender: FDA-Public Use
  Company Number: 2007BI009948

PATIENT
  Sex: Male

DRUGS (3)
  1. TYSABRI [Suspect]
     Indication: MULTIPLE SCLEROSIS
     Route: 042
     Dates: start: 20070130
  2. AVONEX [Concomitant]
     Indication: MULTIPLE SCLEROSIS
     Route: 030
     Dates: start: 20021110
  3. AVONEX [Concomitant]
     Route: 030
     Dates: start: 20070201

REACTIONS (4)
  - EYE INFECTION [None]
  - HERPES OPHTHALMIC [None]
  - HERPES ZOSTER [None]
  - SWELLING [None]
